FAERS Safety Report 19394353 (Version 1)
Quarter: 2021Q2

REPORT INFORMATION
  Report Type: Report from Study
  Country: FR (occurrence: FR)
  Receive Date: 20210609
  Receipt Date: 20210609
  Transmission Date: 20210717
  Serious: Yes (Other)
  Sender: FDA-Public Use
  Company Number: FR-GW PHARMA-202006FRGW02257

PATIENT

DRUGS (8)
  1. EPIDIOLEX [Suspect]
     Active Substance: CANNABIDIOL
     Indication: LENNOX-GASTAUT SYNDROME
     Dosage: 10 MG/KG 390 MILLIGRAM, QD
     Route: 048
     Dates: start: 20190919
  2. RISPERDAL [Interacting]
     Active Substance: RISPERIDONE
     Indication: BEHAVIOUR DISORDER
     Dosage: 2.25 MILLIGRAM, QD (1 MG MORNING AND 1.25 MG)
     Route: 048
  3. CIRCADIN [Concomitant]
     Active Substance: MELATONIN
     Indication: PRODUCT USED FOR UNKNOWN INDICATION
     Dosage: 8 MILLIGRAM, QD
     Route: 048
  4. INOVELON [Concomitant]
     Active Substance: RUFINAMIDE
     Indication: PRODUCT USED FOR UNKNOWN INDICATION
     Dosage: 600 MILLIGRAM BID
     Route: 048
  5. EPIDIOLEX [Interacting]
     Active Substance: CANNABIDIOL
     Dosage: 15 MG/KG, 585 MILLIGRAM QD
     Route: 048
     Dates: start: 20191014
  6. EPIDIOLEX [Interacting]
     Active Substance: CANNABIDIOL
     Dosage: 15 MG/KG, 585 MILLIGRAM QD
     Route: 048
     Dates: start: 20191213
  7. EPIDIOLEX [Interacting]
     Active Substance: CANNABIDIOL
     Dosage: 20 MG/KG, 780 MILLIGRAM QD
     Route: 048
     Dates: start: 20191112
  8. ZONEGRAN [Concomitant]
     Active Substance: ZONISAMIDE
     Indication: PRODUCT USED FOR UNKNOWN INDICATION
     Dosage: 225 MILLIGRAM, QD ((100 MG  IN MORNING AND 125 MG AT NIGHT)
     Route: 048

REACTIONS (1)
  - Dyskinesia [Recovering/Resolving]

NARRATIVE: CASE EVENT DATE: 20191126
